FAERS Safety Report 12094914 (Version 1)
Quarter: 2016Q1

REPORT INFORMATION
  Report Type: Spontaneous
  Country: IT (occurrence: IT)
  Receive Date: 20160219
  Receipt Date: 20160219
  Transmission Date: 20160526
  Serious: No
  Sender: FDA-Public Use
  Company Number: IT-PERNIX THERAPEUTICS-2015PT000150

PATIENT

DRUGS (2)
  1. OKI [Suspect]
     Active Substance: KETOPROFEN LYSINE
     Indication: INFLUENZA
     Dosage: 80 MG, QD
     Route: 048
     Dates: start: 20150301, end: 20150301
  2. ISOCEF [Suspect]
     Active Substance: CEFTIBUTEN
     Dosage: 400 MG, QD
     Route: 048
     Dates: start: 20150301, end: 20150301

REACTIONS (1)
  - Urticaria [Recovered/Resolved]

NARRATIVE: CASE EVENT DATE: 20150301
